FAERS Safety Report 8533766-X (Version None)
Quarter: 2012Q3

REPORT INFORMATION
  Report Type: 
  Country: None (occurrence: None)
  Receive Date: 20120724
  Receipt Date: 20120711
  Transmission Date: 20120928
  Serious: No
  Sender: FDA-Public Use
  Company Number: US-ASTRAZENECA-2012SE39213

PATIENT
  Age: 78 Year
  Sex: Male

DRUGS (2)
  1. BRILINTA [Suspect]
     Route: 048
  2. FERROUS SULFATE TAB [Suspect]
     Indication: HAEMOGLOBIN DECREASED
     Route: 065

REACTIONS (4)
  - FAECES DISCOLOURED [None]
  - CHEST PAIN [None]
  - HAEMOGLOBIN DECREASED [None]
  - EPISTAXIS [None]
